FAERS Safety Report 5849469-6 (Version None)
Quarter: 2008Q3

REPORT INFORMATION
  Report Type: 
  Country: None (occurrence: None)
  Receive Date: 20080819
  Receipt Date: 20080808
  Transmission Date: 20090109
  Serious: Yes (Other)
  Sender: FDA-Public Use
  Company Number: GB-JNJFOC-20080802635

PATIENT
  Age: 59 Year
  Sex: Female

DRUGS (4)
  1. DURAGESIC-100 [Suspect]
     Indication: ACCIDENTAL EXPOSURE
     Route: 065
  2. PROZAC [Concomitant]
  3. ARTIFICIAL TEARS [Concomitant]
  4. ARTIFICIAL SALIVA [Concomitant]

REACTIONS (2)
  - ACCIDENTAL EXPOSURE [None]
  - RESPIRATORY DISORDER [None]
